FAERS Safety Report 5912457-5 (Version None)
Quarter: 2008Q4

REPORT INFORMATION
  Report Type: 
  Country: None (occurrence: None)
  Receive Date: 20081007
  Receipt Date: 20081007
  Transmission Date: 20090506
  Serious: Yes (Hospitalization)
  Sender: FDA-Public Use
  Company Number: None

PATIENT
  Age: 58 Year
  Sex: Male
  Weight: 185.4 kg

DRUGS (9)
  1. LISINOPRIL [Suspect]
     Indication: HYPERTENSION
     Dosage: 10 MG DAILY PO
     Route: 048
  2. AMLODIPINE [Concomitant]
  3. HYDROCHLOROTHIAZIDE [Concomitant]
  4. ASPIRIN [Concomitant]
  5. TRAZODONE HCL [Concomitant]
  6. TRAMADOL HCL [Concomitant]
  7. SILDENAFIL CITRATE [Concomitant]
  8. SENNA [Concomitant]
  9. PSYLLIUM [Concomitant]

REACTIONS (5)
  - COUGH [None]
  - DRUG ABUSE [None]
  - DYSPHAGIA [None]
  - DYSPNOEA [None]
  - SWOLLEN TONGUE [None]
